FAERS Safety Report 7166424-7 (Version None)
Quarter: 2010Q4

REPORT INFORMATION
  Report Type: 
  Country: None (occurrence: None)
  Receive Date: 20101216
  Receipt Date: 20101216
  Transmission Date: 20110411
  Serious: Yes (Other)
  Sender: FDA-Public Use
  Company Number: US-ROXANE LABORATORIES, INC.-2010-DE-06903GD

PATIENT
  Age: 73 Year
  Sex: Male

DRUGS (2)
  1. PREDNISONE [Suspect]
     Indication: AUTOIMMUNE HEPATITIS
  2. AZATHIOPRINE [Suspect]
     Indication: AUTOIMMUNE HEPATITIS

REACTIONS (3)
  - BASAL CELL CARCINOMA [None]
  - NEUROENDOCRINE CARCINOMA OF THE SKIN [None]
  - SQUAMOUS CELL CARCINOMA [None]
